FAERS Safety Report 8962259 (Version 1)
Quarter: 2012Q4

REPORT INFORMATION
  Report Type: 
  Country: US (occurrence: US)
  Receive Date: 20121212
  Receipt Date: 20121212
  Transmission Date: 20130627
  Serious: Yes (Hospitalization)
  Sender: FDA-Public Use
  Company Number: US-ABBOTT-12P-163-1019473-00

PATIENT
  Age: 18 Year
  Sex: Male

DRUGS (1)
  1. VICODIN [Suspect]
     Indication: BONE ABSCESS
     Dosage: 4 grams per day for 2 days, then 8 grams per day for 1 day
     Route: 048

REACTIONS (2)
  - Overdose [Unknown]
  - Liver injury [Unknown]
